FAERS Safety Report 16691681 (Version 1)
Quarter: 2019Q3

REPORT INFORMATION
  Report Type: Spontaneous
  Country: DE (occurrence: DE)
  Receive Date: 20190812
  Receipt Date: 20190812
  Transmission Date: 20191004
  Serious: Yes (Hospitalization)
  Sender: FDA-Public Use
  Company Number: DE-ACCORD-150972

PATIENT
  Age: 75 Year
  Sex: Male

DRUGS (7)
  1. ONDANSETRON [Concomitant]
     Active Substance: ONDANSETRON
     Dosage: 8 MG, ACCORDING TO CHEMOPLAN, MOST RECENTLY 20.03.2018
     Route: 042
  2. DEXAMETHASONE. [Concomitant]
     Active Substance: DEXAMETHASONE
     Dosage: 4 MG, 2X4 MG / D ACCORDING TO CHEMOPLAN
  3. APREPITANT. [Concomitant]
     Active Substance: APREPITANT
     Dosage: 125 MG, 1-0-0-0 LT.CHEMOPLAN
     Route: 048
  4. FOLIC ACID. [Concomitant]
     Active Substance: FOLIC ACID
     Dosage: 5 MG, 1-0-0-0
  5. CISPLATIN. [Suspect]
     Active Substance: CISPLATIN
     Indication: PRODUCT USED FOR UNKNOWN INDICATION
     Dosage: 150 MG, ACCORDING TO CHEMOPLAN, MOST RECENTLY 20.03.2018
     Route: 042
  6. PEMETREXED. [Suspect]
     Active Substance: PEMETREXED
     Indication: PRODUCT USED FOR UNKNOWN INDICATION
     Dosage: 1000 MG, ACCORDING TO CHEMOPLAN, MOST RECENTLY 20.03.2018
     Route: 042
  7. CYANOCOBALAMIN. [Concomitant]
     Active Substance: CYANOCOBALAMIN
     Dosage: NK IU, EVERY 3 WEEKS, LATEST 19.02.2018

REACTIONS (3)
  - Pyrexia [Unknown]
  - Rash [Unknown]
  - Flushing [Unknown]
